FAERS Safety Report 17495563 (Version 1)
Quarter: 2020Q1

REPORT INFORMATION
  Report Type: Spontaneous
  Country: US (occurrence: US)
  Receive Date: 20200304
  Receipt Date: 20200304
  Transmission Date: 20200409
  Serious: Yes (Other)
  Sender: FDA-Public Use
  Company Number: US-PFIZER INC-2020094305

PATIENT
  Age: 76 Year
  Sex: Female
  Weight: 104.3 kg

DRUGS (1)
  1. CELECOXIB. [Suspect]
     Active Substance: CELECOXIB
     Indication: ARTHRITIS
     Dosage: UNK, 1X/DAY
     Route: 048

REACTIONS (4)
  - Condition aggravated [Unknown]
  - Blister [Unknown]
  - Red blood cell sedimentation rate increased [Unknown]
  - Skin ulcer [Unknown]
